FAERS Safety Report 6126933-6 (Version None)
Quarter: 2009Q1

REPORT INFORMATION
  Report Type: 
  Country: None (occurrence: None)
  Receive Date: 20090320
  Receipt Date: 20090219
  Transmission Date: 20090719
  Serious: No
  Sender: FDA-Public Use
  Company Number: US-ABBOTT-09P-163-0558691-00

PATIENT
  Sex: Male
  Weight: 77.18 kg

DRUGS (2)
  1. ERYTHROMYCIN BASE FILMTAB 250MG [Suspect]
     Indication: PYREXIA
     Route: 048
     Dates: start: 20090215, end: 20090216
  2. ERYTHROMYCIN BASE FILMTAB 250MG [Suspect]
     Indication: CONFUSIONAL STATE
     Route: 048
     Dates: start: 20090216

REACTIONS (3)
  - DRUG INEFFECTIVE [None]
  - FEELING COLD [None]
  - MALAISE [None]
